FAERS Safety Report 23814721 (Version 1)
Quarter: 2024Q2

REPORT INFORMATION
  Report Type: Spontaneous
  Country: CA (occurrence: CA)
  Receive Date: 20240503
  Receipt Date: 20240503
  Transmission Date: 20240716
  Serious: Yes (Hospitalization)
  Sender: FDA-Public Use
  Company Number: CA-TEVA-VS-3191568

PATIENT
  Age: 41 Year
  Sex: Female
  Weight: 94 kg

DRUGS (3)
  1. DOXORUBICIN HYDROCHLORIDE [Suspect]
     Active Substance: DOXORUBICIN HYDROCHLORIDE
     Indication: Breast neoplasm
     Dosage: DOXORUBICIN HYDROCHLORIDE INJECTION 10MG/5ML, 50MG/25ML, + 200MG/100ML VIALS, DOSE FORM: SOLUTION...
     Route: 042
  2. CYCLOPHOSPHAMIDE [Suspect]
     Active Substance: CYCLOPHOSPHAMIDE
     Indication: Breast neoplasm
     Dosage: PROCYTOX 1000MG/VIAL, DOSE FORM: POWDER FOR SOLUTION INTRAVENOUS
     Route: 042
  3. KEYTRUDA [Concomitant]
     Active Substance: PEMBROLIZUMAB
     Indication: Product used for unknown indication
     Dosage: KEYTRUDA FOR I.V. INFUSION. 4 ML SINGLE USE VIAL, DOSE FORM: SOLUTION INTRAVENOUS
     Route: 065

REACTIONS (2)
  - Febrile neutropenia [Recovered/Resolved]
  - Pneumonia [Recovered/Resolved]
